FAERS Safety Report 7474401-1 (Version None)
Quarter: 2011Q2

REPORT INFORMATION
  Report Type: 
  Country: None (occurrence: None)
  Receive Date: 20110512
  Receipt Date: 20110503
  Transmission Date: 20111010
  Serious: No
  Sender: FDA-Public Use
  Company Number: US-BAYER-2011-038432

PATIENT
  Age: 29 Year
  Sex: Female

DRUGS (7)
  1. AVELOX [Suspect]
     Indication: COUGH
  2. ORAL CONTRACEPTIVE NOS [Concomitant]
  3. AVELOX [Suspect]
     Indication: OROPHARYNGEAL PAIN
  4. LITHIUM [Concomitant]
  5. AVELOX [Suspect]
     Indication: PHARYNGITIS
     Dosage: 400 MG, QD
     Route: 048
     Dates: start: 20110427, end: 20110429
  6. DEPO-MEDROL [Concomitant]
  7. XANAX [Concomitant]

REACTIONS (1)
  - TACHYCARDIA [None]
